FAERS Safety Report 18926870 (Version 2)
Quarter: 2021Q1

REPORT INFORMATION
  Report Type: Spontaneous
  Country: GB (occurrence: GB)
  Receive Date: 20210223
  Receipt Date: 20210320
  Transmission Date: 20210420
  Serious: Yes (Other)
  Sender: FDA-Public Use
  Company Number: GB-ROCHE-2775915

PATIENT
  Age: 29 Year
  Sex: Female

DRUGS (7)
  1. XOLAIR [Suspect]
     Active Substance: OMALIZUMAB
     Dosage: 600 MG, BIW (300 MG) EACH IN LEFT AND RIGHT ARMS
     Route: 058
     Dates: start: 20201117
  2. XOLAIR [Suspect]
     Active Substance: OMALIZUMAB
     Dosage: 600 MG, BIW (300 MG) EACH SIDE
     Route: 058
  3. FOSTAIR [Concomitant]
     Active Substance: BECLOMETHASONE\FORMOTEROL
     Indication: ASTHMA
     Dosage: 8 DF, QD (PUFFS), INHALER
     Route: 065
  4. VENTOLIN [Concomitant]
     Active Substance: ALBUTEROL SULFATE
     Indication: ASTHMA
     Dosage: 2?3 PUFFS
     Route: 065
  5. XOLAIR [Suspect]
     Active Substance: OMALIZUMAB
     Route: 065
     Dates: start: 20201103
  6. XOLAIR [Suspect]
     Active Substance: OMALIZUMAB
     Indication: ASTHMA
     Route: 058
  7. XOLAIR [Suspect]
     Active Substance: OMALIZUMAB
     Route: 058
     Dates: start: 20201022

REACTIONS (15)
  - Loss of consciousness [Unknown]
  - Productive cough [Unknown]
  - Head injury [Unknown]
  - Dizziness [Unknown]
  - Syncope [Unknown]
  - Pyrexia [Unknown]
  - Dyspnoea [Unknown]
  - Malaise [Unknown]
  - Wheezing [Unknown]
  - Hypersomnia [Unknown]
  - Dry mouth [Unknown]
  - Ageusia [Unknown]
  - Sleep disorder due to a general medical condition [Unknown]
  - Cough [Unknown]
  - Chest discomfort [Unknown]

NARRATIVE: CASE EVENT DATE: 20201103
